FAERS Safety Report 14947370 (Version 1)
Quarter: 2018Q2

REPORT INFORMATION
  Report Type: Spontaneous
  Country: US (occurrence: US)
  Receive Date: 20180529
  Receipt Date: 20180529
  Transmission Date: 20180711
  Serious: No
  Sender: FDA-Public Use
  Company Number: US-WEST-WARD PHARMACEUTICALS CORP.-US-H14001-17-03785

PATIENT
  Age: 56 Year
  Sex: Male

DRUGS (3)
  1. PREDNISONE. [Suspect]
     Active Substance: PREDNISONE
     Indication: PRODUCT USED FOR UNKNOWN INDICATION
     Route: 065
     Dates: start: 201610, end: 201610
  2. BUPRENORPHINE SUBLINGUAL TABLETS 8MG [Concomitant]
     Indication: ARTHRALGIA
     Route: 048
     Dates: start: 2014, end: 201611
  3. BUPRENORPHINE SUBLINGUAL TABLETS 8MG [Concomitant]
     Indication: MUSCULOSKELETAL PAIN

REACTIONS (1)
  - Drug ineffective [Unknown]

NARRATIVE: CASE EVENT DATE: 201610
